FAERS Safety Report 13149980 (Version 2)
Quarter: 2017Q1

REPORT INFORMATION
  Report Type: Spontaneous
  Country: US (occurrence: US)
  Receive Date: 20170125
  Receipt Date: 20170324
  Transmission Date: 20170428
  Serious: Yes (Hospitalization)
  Sender: FDA-Public Use
  Company Number: US-ELI_LILLY_AND_COMPANY-US201701008852

PATIENT
  Sex: Female

DRUGS (1)
  1. STRATTERA [Suspect]
     Active Substance: ATOMOXETINE HYDROCHLORIDE
     Indication: ATTENTION DEFICIT/HYPERACTIVITY DISORDER
     Dosage: 35 MG, QD
     Route: 065
     Dates: start: 2007

REACTIONS (10)
  - Drug withdrawal syndrome [Unknown]
  - Polymenorrhoea [Unknown]
  - Nausea [Unknown]
  - Herpes zoster [Unknown]
  - Drug dose omission [Unknown]
  - Post herpetic neuralgia [Unknown]
  - Headache [Unknown]
  - Depression [Unknown]
  - Arthritis [Unknown]
  - Somnolence [Unknown]

NARRATIVE: CASE EVENT DATE: 2015
